FAERS Safety Report 9185180 (Version 2)
Quarter: 2013Q2

REPORT INFORMATION
  Report Type: Spontaneous
  Country: FR (occurrence: FR)
  Receive Date: 20130325
  Receipt Date: 20130409
  Transmission Date: 20140414
  Serious: Yes (Other)
  Sender: FDA-Public Use
  Company Number: PHHY2013FR026614

PATIENT
  Age: 17 Year
  Sex: Male

DRUGS (5)
  1. PREDNISONE [Suspect]
     Dosage: 1 MG/KG
  2. PREDNISONE [Suspect]
     Dosage: 0.5 MG/KG
  3. PREDNISONE [Suspect]
     Dosage: 0.2 MG/KG, UNK
  4. PREDNISONE [Suspect]
     Dosage: 2.5 MG, EVERY 2 MONTHS
  5. PARACETAMOL [Suspect]

REACTIONS (7)
  - Hepatitis [Unknown]
  - Cholestasis [Unknown]
  - Hyperbilirubinaemia [Unknown]
  - Hepatomegaly [Unknown]
  - Splenomegaly [Unknown]
  - Epstein-Barr virus infection [Recovering/Resolving]
  - Myocarditis [Unknown]
